FAERS Safety Report 17937117 (Version 1)
Quarter: 2020Q2

REPORT INFORMATION
  Report Type: Spontaneous
  Country: ES (occurrence: ES)
  Receive Date: 20200624
  Receipt Date: 20200624
  Transmission Date: 20200714
  Serious: Yes (Death, Hospitalization)
  Sender: FDA-Public Use
  Company Number: ES-TEVA-2020-ES-1790106

PATIENT
  Age: 95 Year
  Sex: Female

DRUGS (15)
  1. AMLODIPINE [Concomitant]
     Active Substance: AMLODIPINE BESYLATE
     Dosage: 10 MILLIGRAM DAILY;
     Route: 065
  2. RISPERIDONE. [Interacting]
     Active Substance: RISPERIDONE
     Dosage: 4 MILLIGRAM DAILY;
     Route: 065
  3. SERTRALINE [Interacting]
     Active Substance: SERTRALINE HYDROCHLORIDE
     Indication: PSEUDODEMENTIA
     Dosage: 50 MILLIGRAM DAILY;
     Route: 065
  4. PAROXETINE. [Interacting]
     Active Substance: PAROXETINE
     Indication: PSEUDODEMENTIA
     Route: 065
     Dates: start: 2007
  5. LORAZEPAM. [Interacting]
     Active Substance: LORAZEPAM
     Indication: DELIRIUM
     Dosage: 2 MILLIGRAM DAILY;
     Route: 065
  6. SPIRONOLACTONE. [Concomitant]
     Active Substance: SPIRONOLACTONE
     Dosage: 100 MILLIGRAM DAILY;
     Route: 065
  7. ACENOCOUMAROL [Concomitant]
     Active Substance: ACENOCOUMAROL
     Dosage: 1.2857 MILLIGRAM DAILY;
     Route: 065
  8. TRAMADOL W/PARACETAMOL [Interacting]
     Active Substance: ACETAMINOPHEN\TRAMADOL
     Dosage: AT BREAKFAST AND DINNER
     Route: 065
  9. TRAZODONE [Interacting]
     Active Substance: TRAZODONE HYDROCHLORIDE
     Indication: PSEUDODEMENTIA
     Route: 065
     Dates: start: 2007
  10. LOSARTAN. [Concomitant]
     Active Substance: LOSARTAN
     Dosage: 100 MILLIGRAM DAILY;
     Route: 065
  11. OMEPRAZOLE. [Suspect]
     Active Substance: OMEPRAZOLE
     Dosage: 20 MILLIGRAM DAILY;
     Route: 065
  12. RISPERIDONE. [Interacting]
     Active Substance: RISPERIDONE
     Indication: DELIRIUM
     Dosage: 2 MILLIGRAM DAILY;
     Route: 065
  13. FUROSEMIDE. [Concomitant]
     Active Substance: FUROSEMIDE
     Dosage: 80 MILLIGRAM DAILY;
     Route: 065
  14. QUETIAPINE. [Interacting]
     Active Substance: QUETIAPINE
     Indication: DELIRIUM
     Dosage: 50 MILLIGRAM DAILY;
     Route: 065
  15. SIMVASTATIN. [Concomitant]
     Active Substance: SIMVASTATIN
     Dosage: 10 MILLIGRAM DAILY;
     Route: 065

REACTIONS (3)
  - Cardio-respiratory arrest [Fatal]
  - Serotonin syndrome [Fatal]
  - Drug interaction [Fatal]
